FAERS Safety Report 7438544-0 (Version None)
Quarter: 2011Q2

REPORT INFORMATION
  Report Type: 
  Country: None (occurrence: None)
  Receive Date: 20110404
  Receipt Date: 20110318
  Transmission Date: 20111010
  Serious: Yes (Other)
  Sender: FDA-Public Use
  Company Number: 2011027728

PATIENT
  Age: 34 Year
  Sex: Female

DRUGS (4)
  1. BLOOD TRANSFUSION, AUXILLARY PRODUCTS (BLOOD TRANSFUSION, AUXILIARY PR [Concomitant]
  2. RHOPHYLAC [Suspect]
     Indication: PROPHYLAXIS AGAINST RH ISOIMMUNISATION
     Dosage: 300 ?G QD INTRAMUSCULAR
     Route: 030
     Dates: start: 20101109, end: 20101109
  3. RHOPHYLAC [Suspect]
     Indication: PROPHYLAXIS AGAINST RH ISOIMMUNISATION
     Dosage: 300 ?G QD INTRAMUSCULAR
     Route: 030
     Dates: start: 20110216, end: 20110216
  4. RHOPHYLAC [Suspect]

REACTIONS (6)
  - PLACENTA PRAEVIA [None]
  - DRUG EXPOSURE DURING PREGNANCY [None]
  - ALANINE AMINOTRANSFERASE INCREASED [None]
  - HEPATITIS C ANTIBODY POSITIVE [None]
  - ASPARTATE AMINOTRANSFERASE INCREASED [None]
  - PREMATURE BABY [None]
